FAERS Safety Report 8544566 (Version 4)
Quarter: 2013Q4

REPORT INFORMATION
  Report Type: Spontaneous
  Country: US (occurrence: US)
  Receive Date: 20120503
  Receipt Date: 20131218
  Transmission Date: 20140711
  Serious: Yes (Hospitalization, Other)
  Sender: FDA-Public Use
  Company Number: US-ROCHE-1062665

PATIENT
  Age: 32 Year
  Sex: Male
  Weight: 49.94 kg

DRUGS (3)
  1. ACCUTANE [Suspect]
     Indication: ACNE
     Route: 048
     Dates: start: 19971016
  2. ACCUTANE [Suspect]
     Route: 048
     Dates: start: 19980113
  3. ACCUTANE [Suspect]
     Dosage: ALTERNATING 40 MG AND 80 MG EVERY OTHER DAY
     Route: 048
     Dates: start: 19980305, end: 19980601

REACTIONS (14)
  - Irritable bowel syndrome [Unknown]
  - Inflammatory bowel disease [Unknown]
  - Injury [Unknown]
  - Colitis [Unknown]
  - Depression [Unknown]
  - Drug hypersensitivity [Unknown]
  - Lip dry [Unknown]
  - Dry skin [Unknown]
  - Epistaxis [Unknown]
  - Blister [Unknown]
  - Stomatitis [Unknown]
  - Skin fissures [Unknown]
  - Nasal ulcer [Unknown]
  - Cellulitis [Unknown]
